FAERS Safety Report 6399286-6 (Version None)
Quarter: 2009Q4

REPORT INFORMATION
  Report Type: 
  Country: None (occurrence: None)
  Receive Date: 20091014
  Receipt Date: 20091009
  Transmission Date: 20100525
  Serious: Yes (Hospitalization)
  Sender: FDA-Public Use
  Company Number: US-BIOGENIDEC-2009BI031121

PATIENT
  Age: 43 Year
  Sex: Female

DRUGS (2)
  1. AVONEX [Suspect]
     Indication: MULTIPLE SCLEROSIS
     Route: 030
     Dates: start: 20060327, end: 20090411
  2. AVONEX [Suspect]
     Route: 030
     Dates: start: 20090712, end: 20090809

REACTIONS (2)
  - ANXIETY [None]
  - DEPRESSION [None]
